FAERS Safety Report 8382497-8 (Version None)
Quarter: 2012Q2

REPORT INFORMATION
  Report Type: 
  Country: None (occurrence: None)
  Receive Date: 20120524
  Receipt Date: 20120516
  Transmission Date: 20120825
  Serious: Yes (Other)
  Sender: FDA-Public Use
  Company Number: US-JNJFOC-20120514673

PATIENT
  Sex: Female
  Weight: 72.58 kg

DRUGS (4)
  1. CELEXA [Concomitant]
     Indication: DEPRESSION
     Dosage: ONCE A DAY
     Route: 065
  2. XANAX [Concomitant]
     Indication: DEPRESSION
     Dosage: THREE TIMES A DAY
     Route: 065
  3. WELLBUTRIN [Concomitant]
     Indication: DEPRESSION
     Dosage: ONCE A DAY
     Route: 065
  4. NUCYNTA ER [Suspect]
     Indication: MUSCULOSKELETAL PAIN
     Dosage: ONCE
     Route: 048
     Dates: start: 20120511, end: 20120511

REACTIONS (7)
  - MEMORY IMPAIRMENT [None]
  - INCOHERENT [None]
  - SPEECH DISORDER [None]
  - HALLUCINATION [None]
  - DYSPNOEA [None]
  - ABASIA [None]
  - LOSS OF CONSCIOUSNESS [None]
